FAERS Safety Report 25949224 (Version 1)
Quarter: 2025Q4

REPORT INFORMATION
  Report Type: Spontaneous
  Country: RU (occurrence: RU)
  Receive Date: 20251022
  Receipt Date: 20251022
  Transmission Date: 20260119
  Serious: Yes (Hospitalization, Other)
  Sender: SANDOZ
  Company Number: None

PATIENT
  Sex: Female
  Weight: 98 kg

DRUGS (3)
  1. AMOXICILLIN\CLAVULANATE POTASSIUM [Suspect]
     Active Substance: AMOXICILLIN\CLAVULANATE POTASSIUM
     Indication: Antibiotic prophylaxis
     Dosage: UNK
     Route: 048
     Dates: start: 20250908, end: 20251006
  2. NEPAFENAC [Suspect]
     Active Substance: NEPAFENAC
     Indication: Product used for unknown indication
     Dosage: UNK
     Route: 065
  3. Hesperidin + diosmin [Concomitant]
     Indication: Peripheral venous disease
     Dosage: 450 MG +50 MG
     Route: 048
     Dates: end: 20251006

REACTIONS (4)
  - Urticaria [Recovered/Resolved]
  - Angioedema [Recovered/Resolved]
  - Gait disturbance [Unknown]
  - Swelling [Unknown]

NARRATIVE: CASE EVENT DATE: 20251004
